FAERS Safety Report 14574582 (Version 1)
Quarter: 2018Q1

REPORT INFORMATION
  Report Type: Spontaneous
  Country: US (occurrence: US)
  Receive Date: 20180227
  Receipt Date: 20180227
  Transmission Date: 20180509
  Serious: No
  Sender: FDA-Public Use
  Company Number: US-ROCHE-1960402

PATIENT
  Age: 61 Year
  Sex: Female

DRUGS (10)
  1. OXYGEN (NIGHT) [Concomitant]
     Dosage: YES
     Route: 055
  2. XOLAIR [Suspect]
     Active Substance: OMALIZUMAB
     Indication: ASTHMA
     Dosage: NO
     Route: 058
     Dates: start: 201612
  3. DILTIAZEM. [Concomitant]
     Active Substance: DILTIAZEM
     Dosage: DAILY ;ONGOING: YES
     Route: 065
  4. SOLU-MEDROL [Concomitant]
     Active Substance: METHYLPREDNISOLONE SODIUM SUCCINATE
     Indication: PREMEDICATION
     Dosage: YES
     Route: 065
  5. HYDROCORTISONE. [Concomitant]
     Active Substance: HYDROCORTISONE
     Indication: ADRENAL INSUFFICIENCY
     Dosage: 7.5MGS IN THE AM AND 5MGS IN THE PM ;ONGOING: YES
     Route: 065
  6. TYLENOL [Concomitant]
     Active Substance: ACETAMINOPHEN
     Indication: PREMEDICATION
     Dosage: YES
     Route: 065
  7. BREATHING TREATMENTS (UNK INGREDIENTS) [Concomitant]
     Indication: PREMEDICATION
     Dosage: YES
     Route: 065
  8. XOLAIR [Suspect]
     Active Substance: OMALIZUMAB
     Dosage: YES
     Route: 058
  9. DILTIAZEM. [Concomitant]
     Active Substance: DILTIAZEM
     Indication: ATRIAL TACHYCARDIA
     Dosage: DAILY ;ONGOING: NO
     Route: 065
     Dates: start: 2016
  10. ZYRTEC [Concomitant]
     Active Substance: CETIRIZINE HYDROCHLORIDE
     Indication: PREMEDICATION
     Dosage: YES
     Route: 065

REACTIONS (6)
  - Chills [Recovered/Resolved]
  - Dizziness [Recovered/Resolved]
  - Dizziness [Recovered/Resolved]
  - Fatigue [Recovered/Resolved]
  - Blood pressure decreased [Recovered/Resolved]
  - Breast cyst [Unknown]

NARRATIVE: CASE EVENT DATE: 20170705
